FAERS Safety Report 20394067 (Version 1)
Quarter: 2022Q1

REPORT INFORMATION
  Report Type: Spontaneous
  Country: US (occurrence: US)
  Receive Date: 20220129
  Receipt Date: 20220129
  Transmission Date: 20220424
  Serious: Yes (Hospitalization, Other)
  Sender: FDA-Public Use
  Company Number: US-AMGEN-USASP2022014002

PATIENT
  Sex: Male

DRUGS (1)
  1. CORLANOR [Suspect]
     Active Substance: IVABRADINE HYDROCHLORIDE
     Indication: Tachycardia
     Dosage: 5 MILLIGRAM, BID
     Route: 065
     Dates: start: 2020

REACTIONS (5)
  - COVID-19 pneumonia [Unknown]
  - Seizure [Unknown]
  - Decubitus ulcer [Unknown]
  - Wound [Unknown]
  - Off label use [Unknown]
